FAERS Safety Report 12564932 (Version 1)
Quarter: 2016Q3

REPORT INFORMATION
  Report Type: Spontaneous
  Country: BR (occurrence: BR)
  Receive Date: 20160718
  Receipt Date: 20160718
  Transmission Date: 20161109
  Serious: Yes (Other)
  Sender: FDA-Public Use
  Company Number: BR-PFIZER INC-2016326766

PATIENT
  Sex: Male

DRUGS (6)
  1. XALATAN [Suspect]
     Active Substance: LATANOPROST
     Indication: GLAUCOMA
     Dosage: UNK
     Dates: start: 2002, end: 2012
  2. COMBIGAN [Suspect]
     Active Substance: BRIMONIDINE TARTRATE\TIMOLOL MALEATE
  3. XALATAN [Suspect]
     Active Substance: LATANOPROST
     Dosage: UNK
  4. XALACOM [Suspect]
     Active Substance: LATANOPROST\TIMOLOL MALEATE
  5. AZOPT [Suspect]
     Active Substance: BRINZOLAMIDE
  6. LUMIGAN [Suspect]
     Active Substance: BIMATOPROST

REACTIONS (3)
  - Ocular discomfort [Unknown]
  - Eye irritation [Unknown]
  - Platelet count decreased [Not Recovered/Not Resolved]
